FAERS Safety Report 5601727-6 (Version None)
Quarter: 2008Q1

REPORT INFORMATION
  Report Type: 
  Country: None (occurrence: None)
  Receive Date: 20080124
  Receipt Date: 20080114
  Transmission Date: 20080703
  Serious: Yes (Hospitalization)
  Sender: FDA-Public Use
  Company Number: FR-ABBOTT-08P-056-0433730-00

PATIENT
  Sex: Male
  Weight: 79 kg

DRUGS (16)
  1. NORVIR [Suspect]
     Indication: DRUG USE FOR UNKNOWN INDICATION
     Route: 048
     Dates: start: 20060502, end: 20060820
  2. NORVIR [Suspect]
     Route: 048
     Dates: start: 20070630, end: 20070723
  3. NORVIR [Suspect]
     Route: 048
     Dates: start: 20070731
  4. DARUNAVIR [Suspect]
     Indication: DRUG USE FOR UNKNOWN INDICATION
     Route: 048
     Dates: start: 20070630, end: 20070723
  5. DARUNAVIR [Suspect]
     Route: 048
     Dates: start: 20070731
  6. ETRAVIRINE [Concomitant]
     Indication: DRUG USE FOR UNKNOWN INDICATION
     Route: 048
     Dates: end: 20071010
  7. ETRAVIRINE [Concomitant]
     Route: 048
     Dates: start: 20071120
  8. RALTEGRAVIR [Concomitant]
     Indication: DRUG USE FOR UNKNOWN INDICATION
     Route: 048
     Dates: end: 20071010
  9. RALTEGRAVIR [Concomitant]
     Route: 048
     Dates: start: 20071120
  10. EMTRICITABINE W/TENOFOVIR [Concomitant]
     Indication: DRUG USE FOR UNKNOWN INDICATION
     Route: 048
     Dates: end: 20071010
  11. EMTRICITABINE W/TENOFOVIR [Concomitant]
     Route: 048
     Dates: start: 20071120
  12. BACTRIM [Concomitant]
     Indication: DRUG USE FOR UNKNOWN INDICATION
  13. PHENOXYMETHYL PENICILLIN [Concomitant]
     Indication: DRUG USE FOR UNKNOWN INDICATION
  14. KALETRA [Concomitant]
     Indication: DRUG USE FOR UNKNOWN INDICATION
     Route: 048
     Dates: start: 20050901, end: 20060101
  15. KALETRA [Concomitant]
     Route: 048
     Dates: start: 20060502, end: 20060820
  16. SAQUINAVIR [Concomitant]
     Indication: DRUG USE FOR UNKNOWN INDICATION
     Dates: start: 20060502, end: 20060820

REACTIONS (4)
  - DRUG RESISTANCE [None]
  - MYALGIA [None]
  - PANCREATITIS [None]
  - RHABDOMYOLYSIS [None]
